FAERS Safety Report 9655486 (Version 2)
Quarter: 2013Q4

REPORT INFORMATION
  Report Type: Spontaneous
  Country: US (occurrence: US)
  Receive Date: 20131029
  Receipt Date: 20131029
  Transmission Date: 20140711
  Serious: Yes (Hospitalization, Other)
  Sender: FDA-Public Use
  Company Number: US-NAPPMUNDI-USA-2012-0087960

PATIENT
  Sex: Female
  Weight: 99 kg

DRUGS (4)
  1. OXYCONTIN (NDA 22-272) [Suspect]
     Indication: PAIN
     Dosage: 240 MG, Q8H
     Route: 048
     Dates: end: 20100913
  2. HYDROMORPHONE HCL (SIMILAR TO 19-892) [Concomitant]
     Indication: PAIN
     Dosage: 8 MG, Q2H
     Route: 048
     Dates: start: 20090805, end: 20120328
  3. ALPRAZOLAM [Concomitant]
     Indication: ANXIETY
     Dosage: 0.5 MG, TID PRN
     Dates: start: 20060104, end: 20120328
  4. GABAPENTIN [Concomitant]
     Indication: NEURALGIA
     Dosage: 300 MG, TID
     Dates: start: 20100603, end: 20120328

REACTIONS (3)
  - Pain [Unknown]
  - Dyspnoea [Recovered/Resolved]
  - Oedema [Recovered/Resolved]
